FAERS Safety Report 9563009 (Version 4)
Quarter: 2014Q2

REPORT INFORMATION
  Report Type: Spontaneous
  Country: FR (occurrence: FR)
  Receive Date: 20130927
  Receipt Date: 20140603
  Transmission Date: 20141212
  Serious: Yes (Other)
  Sender: FDA-Public Use
  Company Number: PHHY2013FR106547

PATIENT
  Age: 2 Year
  Sex: Male
  Weight: 11 kg

DRUGS (1)
  1. PREDNISONE SANDOZ [Suspect]
     Indication: OFF LABEL USE
     Dosage: 2 DF, QD
     Route: 048

REACTIONS (3)
  - Intentional product misuse [Unknown]
  - Wrong technique in drug usage process [Unknown]
  - Drug dispensing error [Unknown]
